FAERS Safety Report 11194464 (Version 1)
Quarter: 2015Q2

REPORT INFORMATION
  Report Type: Spontaneous
  Country: FR (occurrence: FR)
  Receive Date: 20150616
  Receipt Date: 20150616
  Transmission Date: 20150821
  Serious: Yes (Hospitalization)
  Sender: FDA-Public Use
  Company Number: FR-DSJP-DSE-2015-118536

PATIENT

DRUGS (3)
  1. ALTEISDUO [Suspect]
     Active Substance: HYDROCHLOROTHIAZIDE\OLMESARTAN MEDOXOMIL
     Indication: HYPERTENSION
     Route: 048
     Dates: start: 2011, end: 20141224
  2. LOXEN                              /00639802/ [Concomitant]
     Active Substance: NICARDIPINE
     Dosage: UNK, BID
     Dates: start: 20141225
  3. LOXEN                              /00639802/ [Concomitant]
     Active Substance: NICARDIPINE
     Indication: HYPERTENSION
     Dosage: UNK
     Route: 048
     Dates: start: 2003, end: 20141224

REACTIONS (5)
  - Weight decreased [Recovered/Resolved]
  - Oesophageal candidiasis [Unknown]
  - Diarrhoea [Recovered/Resolved]
  - Gastrointestinal candidiasis [Unknown]
  - Intestinal villi atrophy [Unknown]

NARRATIVE: CASE EVENT DATE: 20141101
